FAERS Safety Report 4620131-0 (Version None)
Quarter: 2005Q1

REPORT INFORMATION
  Report Type: 
  Country: None (occurrence: None)
  Receive Date: 20050324
  Receipt Date: 20050315
  Transmission Date: 20050727
  Serious: Yes (Hospitalization)
  Sender: FDA-Public Use
  Company Number: DE-2005-003752

PATIENT
  Age: 15 Year
  Sex: Female

DRUGS (1)
  1. YASMIN [Suspect]
     Dosage: ORAL
     Route: 048
     Dates: start: 20050101

REACTIONS (2)
  - LOSS OF CONSCIOUSNESS [None]
  - SYNCOPE [None]
